FAERS Safety Report 20209842 (Version 1)
Quarter: 2021Q4

REPORT INFORMATION
  Report Type: Spontaneous
  Country: US (occurrence: US)
  Receive Date: 20211221
  Receipt Date: 20211221
  Transmission Date: 20220303
  Serious: Yes (Other)
  Sender: FDA-Public Use
  Company Number: US-APOTEX-2021AP045217

PATIENT
  Age: 69 Year
  Sex: Male

DRUGS (1)
  1. SIROLIMUS [Suspect]
     Active Substance: SIROLIMUS
     Indication: Immunosuppression
     Dosage: UNK(THERAPY DURATION OVER SEVEN YEARS)
     Route: 065

REACTIONS (2)
  - Optic neuropathy [Recovering/Resolving]
  - Toxicity to various agents [Recovering/Resolving]
